FAERS Safety Report 6417030-0 (Version None)
Quarter: 2009Q4

REPORT INFORMATION
  Report Type: 
  Country: None (occurrence: None)
  Receive Date: 20091026
  Receipt Date: 20091008
  Transmission Date: 20100525
  Serious: Yes (Disabling, Other)
  Sender: FDA-Public Use
  Company Number: ACO_00612_2009

PATIENT
  Age: 79 Year
  Sex: Female

DRUGS (4)
  1. TIZANIDINE HYDROCHLORIDE [Suspect]
     Indication: BACK PAIN
     Dosage: 3 MG ORAL, DF ORAL
     Route: 048
     Dates: start: 20080101, end: 20090901
  2. TIZANIDINE HYDROCHLORIDE [Suspect]
     Indication: BACK PAIN
     Dosage: 3 MG ORAL, DF ORAL
     Route: 048
     Dates: start: 20090901
  3. NEUROTROPIN /01024301/ [Concomitant]
  4. METHYLCOBALAMIN [Concomitant]

REACTIONS (2)
  - BLOOD PRESSURE DECREASED [None]
  - DYSSTASIA [None]
